FAERS Safety Report 17438909 (Version 1)
Quarter: 2020Q1

REPORT INFORMATION
  Report Type: Spontaneous
  Country: US (occurrence: US)
  Receive Date: 20200220
  Receipt Date: 20200220
  Transmission Date: 20200409
  Serious: No
  Sender: FDA-Public Use
  Company Number: NVSC2020US046385

PATIENT
  Age: 25 Year
  Sex: Female

DRUGS (4)
  1. TRIAMCINOLONE [Suspect]
     Active Substance: TRIAMCINOLONE
     Dosage: 10 MG/ML
     Route: 026
  2. TRIAMCINOLONE [Suspect]
     Active Substance: TRIAMCINOLONE
     Indication: NECROBIOSIS LIPOIDICA DIABETICORUM
     Dosage: UNK
     Route: 061
  3. PENTOXIFYLLINE. [Suspect]
     Active Substance: PENTOXIFYLLINE
     Indication: NECROBIOSIS LIPOIDICA DIABETICORUM
     Route: 065
  4. TOFACITINIB [Concomitant]
     Active Substance: TOFACITINIB
     Indication: NECROBIOSIS LIPOIDICA DIABETICORUM
     Route: 065

REACTIONS (1)
  - Drug ineffective for unapproved indication [Unknown]
